FAERS Safety Report 15058676 (Version 1)
Quarter: 2018Q2

REPORT INFORMATION
  Report Type: Spontaneous
  Country: US (occurrence: US)
  Receive Date: 20180604
  Receipt Date: 20180604
  Transmission Date: 20180711
  Serious: No
  Sender: FDA-Public Use
  Company Number: None

PATIENT
  Age: 48 Year
  Sex: Male
  Weight: 117.9 kg

DRUGS (1)
  1. RIGHT GUARD XTREME CLEAR FRESH [Suspect]
     Active Substance: ALUMINUM ZIRCONIUM TETRACHLOROHYDREX GLY
     Indication: HYPERHIDROSIS
     Route: 061
     Dates: start: 20180601, end: 20180604

REACTIONS (1)
  - Chemical burn [None]

NARRATIVE: CASE EVENT DATE: 20180601
